FAERS Safety Report 14513132 (Version 1)
Quarter: 2018Q1

REPORT INFORMATION
  Report Type: Spontaneous
  Country: US (occurrence: US)
  Receive Date: 20180208
  Receipt Date: 20180208
  Transmission Date: 20180509
  Serious: Yes (Other)
  Sender: FDA-Public Use
  Company Number: None

PATIENT
  Age: 17 Year
  Sex: Female
  Weight: 74.25 kg

DRUGS (7)
  1. NOVOLOG [Concomitant]
     Active Substance: INSULIN ASPART
  2. LEVOTHYROXIN [Concomitant]
     Active Substance: LEVOTHYROXINE
  3. MOTRIN [Concomitant]
     Active Substance: IBUPROFEN
  4. MULTIVITAMIN [Concomitant]
     Active Substance: VITAMINS
  5. TRESIBA [Concomitant]
     Active Substance: INSULIN DEGLUDEC
  6. LEVEMIR [Suspect]
     Active Substance: INSULIN DETEMIR
     Indication: DRUG THERAPY
     Route: 058
     Dates: start: 20180205
  7. ADVIL [Concomitant]
     Active Substance: IBUPROFEN

REACTIONS (3)
  - Injection site mass [None]
  - Injection site warmth [None]
  - Injection site erythema [None]

NARRATIVE: CASE EVENT DATE: 20180205
